FAERS Safety Report 9145227 (Version 1)
Quarter: 2013Q1

REPORT INFORMATION
  Report Type: Spontaneous
  Country: US (occurrence: None)
  Receive Date: 20130226
  Receipt Date: 20130226
  Transmission Date: 20140127
  Serious: Yes (Hospitalization, Disabling)
  Sender: FDA-Public Use
  Company Number: None

PATIENT
  Age: 53 Year
  Sex: Male
  Weight: 75 kg

DRUGS (1)
  1. TAVANIC [Suspect]
     Indication: URINARY TRACT INFECTION
     Dosage: WHOLE BOTTLE BD IV DRIP
     Dates: start: 20121121, end: 20121125

REACTIONS (2)
  - Convulsion [None]
  - Drug level decreased [None]
